FAERS Safety Report 7438943-7 (Version None)
Quarter: 2011Q2

REPORT INFORMATION
  Report Type: 
  Country: None (occurrence: None)
  Receive Date: 20110426
  Receipt Date: 20110414
  Transmission Date: 20111010
  Serious: Yes (Hospitalization)
  Sender: FDA-Public Use
  Company Number: FR-BAYER-2011-033227

PATIENT
  Age: 27 Year
  Sex: Male

DRUGS (1)
  1. MOXIFLOXACIN HCL [Suspect]
     Indication: ACUTE SINUSITIS
     Dosage: 1 DF, QD
     Route: 048
     Dates: start: 20110128, end: 20110201

REACTIONS (5)
  - NAUSEA [None]
  - ALTERED STATE OF CONSCIOUSNESS [None]
  - VOMITING [None]
  - TREMOR [None]
  - SPEECH DISORDER [None]
